FAERS Safety Report 7308455-X (Version None)
Quarter: 2011Q1

REPORT INFORMATION
  Report Type: 
  Country: None (occurrence: None)
  Receive Date: 20110223
  Receipt Date: 20110216
  Transmission Date: 20110831
  Serious: No
  Sender: FDA-Public Use
  Company Number: US-BIOGENIDEC-2011BI006162

PATIENT
  Age: 41 Year
  Sex: Female

DRUGS (3)
  1. AVONEX [Suspect]
     Route: 030
     Dates: start: 20030917
  2. AVONEX [Suspect]
     Route: 030
     Dates: start: 20010405
  3. AVONEX [Suspect]
     Indication: MULTIPLE SCLEROSIS
     Route: 030
     Dates: start: 20010501

REACTIONS (3)
  - MUSCULAR WEAKNESS [None]
  - CELLULITIS [None]
  - ARTHROPOD BITE [None]
